FAERS Safety Report 9313278 (Version 1)
Quarter: 2013Q2

REPORT INFORMATION
  Report Type: Report from Study
  Country: US (occurrence: US)
  Receive Date: 20130528
  Receipt Date: 20130528
  Transmission Date: 20140414
  Serious: No
  Sender: FDA-Public Use
  Company Number: US-ABBOTT-13P-163-1066930-00

PATIENT
  Sex: Male
  Weight: 83.99 kg

DRUGS (1)
  1. ANDROGEL [Suspect]
     Indication: OLFACTO GENITAL DYSPLASIA
     Dosage: 3 PUMPS PER DAY
     Dates: start: 201203

REACTIONS (2)
  - Off label use [Not Recovered/Not Resolved]
  - Delayed puberty [Unknown]
